FAERS Safety Report 15508458 (Version 3)
Quarter: 2018Q4

REPORT INFORMATION
  Report Type: Report from Study
  Country: FR (occurrence: FR)
  Receive Date: 20181016
  Receipt Date: 20181213
  Transmission Date: 20190205
  Serious: Yes (Hospitalization)
  Sender: FDA-Public Use
  Company Number: FR-EISAI MEDICAL RESEARCH-EC-2018-046244

PATIENT
  Age: 64 Year
  Sex: Female
  Weight: 80 kg

DRUGS (5)
  1. LENVATINIB [Suspect]
     Active Substance: LENVATINIB
     Indication: THYROID CANCER
     Dosage: 20 MG OR 14 MG
     Route: 048
     Dates: start: 20180927, end: 20181006
  2. LEVOTHYROX [Concomitant]
     Active Substance: LEVOTHYROXINE
  3. LENVATINIB [Suspect]
     Active Substance: LENVATINIB
     Dosage: 20 MG OR 14 MG
     Route: 048
     Dates: start: 20181017
  4. AMLOR [Concomitant]
     Active Substance: AMLODIPINE BESYLATE
  5. INEXIUM [Concomitant]
     Active Substance: ESOMEPRAZOLE

REACTIONS (1)
  - Electrocardiogram abnormal [Recovered/Resolved]

NARRATIVE: CASE EVENT DATE: 20181009
